FAERS Safety Report 24553647 (Version 1)
Quarter: 2024Q4

REPORT INFORMATION
  Report Type: Spontaneous
  Country: DE (occurrence: DE)
  Receive Date: 20241028
  Receipt Date: 20241028
  Transmission Date: 20250114
  Serious: No
  Sender: ROCHE
  Company Number: DE-IPSEN Group, Research and Development-2024-05475

PATIENT
  Age: 13 Year
  Sex: Male

DRUGS (1)
  1. NUTROPIN AQ [Suspect]
     Active Substance: SOMATROPIN
     Indication: Growth disorder
     Dosage: 10 MG/ 2 ML, ONCE IN THE EVENING
     Route: 065

REACTIONS (9)
  - Product dose omission issue [Unknown]
  - Incorrect dose administered [Unknown]
  - Wrong technique in product usage process [Unknown]
  - Off label use [Unknown]
  - Device power source issue [Unknown]
  - Circumstance or information capable of leading to medication error [Unknown]
  - Device mechanical issue [Unknown]
  - Device information output issue [Unknown]
  - Circumstance or information capable of leading to medication error [Unknown]
